FAERS Safety Report 10333783 (Version 2)
Quarter: 2014Q3

REPORT INFORMATION
  Report Type: Spontaneous
  Country: US (occurrence: US)
  Receive Date: 20140723
  Receipt Date: 20140723
  Transmission Date: 20150326
  Serious: No
  Sender: FDA-Public Use
  Company Number: US-UNITED THERAPEUTICS-UTC-046190

PATIENT
  Age: 69 Year
  Sex: Male
  Weight: 87.31 kg

DRUGS (1)
  1. TYVASO [Suspect]
     Active Substance: TREPROSTINIL
     Dosage: 18-54 MICROGRAMS
     Dates: start: 20140311

REACTIONS (3)
  - Treatment noncompliance [Unknown]
  - Headache [Unknown]
  - Insomnia [Unknown]

NARRATIVE: CASE EVENT DATE: 201403
